FAERS Safety Report 18521908 (Version 14)
Quarter: 2022Q3

REPORT INFORMATION
  Report Type: Report from Study
  Country: JP (occurrence: JP)
  Receive Date: 20201119
  Receipt Date: 20220802
  Transmission Date: 20221026
  Serious: Yes (Other)
  Sender: FDA-Public Use
  Company Number: NVSJ2020JP012155

PATIENT
  Age: 72 Year
  Sex: Male
  Weight: 60.3 kg

DRUGS (3)
  1. BEOVU [Suspect]
     Active Substance: BROLUCIZUMAB-DBLL
     Indication: Polypoidal choroidal vasculopathy
     Dosage: 6 MG
     Route: 031
     Dates: start: 20200806, end: 20200806
  2. BEOVU [Suspect]
     Active Substance: BROLUCIZUMAB-DBLL
     Indication: Age-related macular degeneration
  3. BEOVU [Suspect]
     Active Substance: BROLUCIZUMAB-DBLL
     Indication: Neovascular age-related macular degeneration

REACTIONS (10)
  - Uveitis [Recovered/Resolved]
  - Anterior chamber cell [Unknown]
  - Vitreous opacities [Recovered/Resolved]
  - Vitreous floaters [Recovered/Resolved]
  - Keratic precipitates [Unknown]
  - Visual acuity reduced transiently [Recovered/Resolved]
  - Detachment of retinal pigment epithelium [Recovering/Resolving]
  - Subretinal fluid [Unknown]
  - Iritis [Recovered/Resolved]
  - Vision blurred [Unknown]

NARRATIVE: CASE EVENT DATE: 20200409
